FAERS Safety Report 21981643 (Version 2)
Quarter: 2023Q1

REPORT INFORMATION
  Report Type: Report from Study
  Country: CA (occurrence: CA)
  Receive Date: 20230212
  Receipt Date: 20230215
  Transmission Date: 20230418
  Serious: Yes (Hospitalization, Other)
  Sender: FDA-Public Use
  Company Number: CA-JNJFOC-20230211330

PATIENT
  Age: 6 Decade
  Sex: Male
  Weight: 106.69 kg

DRUGS (3)
  1. TREMFYA [Suspect]
     Active Substance: GUSELKUMAB
     Indication: Product used for unknown indication
     Dosage: LAST ADMINISTRATION WAS ON 10-NOV-2023
     Route: 065
     Dates: start: 20190619
  2. METFORMIN [Concomitant]
     Active Substance: METFORMIN HYDROCHLORIDE
     Dosage: LAST DATE OF ADMINISTRATION 13/NOV/2022
  3. PERINDOPRIL [Concomitant]
     Active Substance: PERINDOPRIL
     Dosage: LAST DATE OF ADMINISTRATION - 13/11/2022

REACTIONS (1)
  - Myocardial infarction [Recovered/Resolved]

NARRATIVE: CASE EVENT DATE: 20221114
